FAERS Safety Report 7977799-0 (Version None)
Quarter: 2011Q4

REPORT INFORMATION
  Report Type: 
  Country: None (occurrence: None)
  Receive Date: 20111214
  Receipt Date: 20111130
  Transmission Date: 20120403
  Serious: No
  Sender: FDA-Public Use
  Company Number: US-AMGEN-USASP2011044993

PATIENT
  Sex: Female

DRUGS (2)
  1. ENBREL [Suspect]
     Indication: RHEUMATOID ARTHRITIS
     Dosage: 25 MG, 2 TIMES/WK
     Dates: start: 20060101
  2. ENBREL [Suspect]
     Indication: OSTEOARTHRITIS

REACTIONS (4)
  - BLEPHARITIS [None]
  - SKIN EXFOLIATION [None]
  - EYE SWELLING [None]
  - RASH [None]
